FAERS Safety Report 4692733-7 (Version None)
Quarter: 2005Q2

REPORT INFORMATION
  Report Type: 
  Country: None (occurrence: None)
  Receive Date: 20050617
  Receipt Date: 20041203
  Transmission Date: 20051028
  Serious: Yes (Other)
  Sender: FDA-Public Use
  Company Number: GB-GLAXOSMITHKLINE-B0359528A

PATIENT
  Sex: Female

DRUGS (1)
  1. SEROXAT [Suspect]
     Indication: DEPRESSION
     Dosage: 20MG PER DAY
     Route: 065
     Dates: start: 20000101

REACTIONS (5)
  - DEPRESSED MOOD [None]
  - DRUG INEFFECTIVE [None]
  - ILL-DEFINED DISORDER [None]
  - OVERDOSE [None]
  - SUICIDAL IDEATION [None]
